FAERS Safety Report 20416066 (Version 3)
Quarter: 2022Q2

REPORT INFORMATION
  Report Type: Report from Study
  Country: US (occurrence: None)
  Receive Date: 20220202
  Receipt Date: 20220502
  Transmission Date: 20220720
  Serious: Yes (Hospitalization)
  Sender: FDA-Public Use
  Company Number: US-ROCHE-3008369

PATIENT
  Age: 71 Year
  Sex: Female
  Weight: 53.6 kg

DRUGS (1)
  1. ATEZOLIZUMAB [Suspect]
     Active Substance: ATEZOLIZUMAB
     Indication: Small cell lung cancer
     Dosage: ON 03/SEP/2021 LAST DOSE WAS ADMINISTERED PRIOR TO SAE
     Route: 041
     Dates: start: 20210813

REACTIONS (3)
  - Cerebrovascular accident [Recovered/Resolved]
  - Pericarditis [Recovered/Resolved]
  - Dysphagia [Unknown]

NARRATIVE: CASE EVENT DATE: 20210922
